FAERS Safety Report 10976692 (Version 3)
Quarter: 2015Q2

REPORT INFORMATION
  Report Type: Spontaneous
  Country: US (occurrence: US)
  Receive Date: 20150401
  Receipt Date: 20150505
  Transmission Date: 20150821
  Serious: No
  Sender: FDA-Public Use
  Company Number: US-ELI_LILLY_AND_COMPANY-US201502005873

PATIENT
  Sex: Male
  Weight: 96.6 kg

DRUGS (6)
  1. ASPIRIN                            /00002701/ [Concomitant]
     Active Substance: ASPIRIN
  2. OPSUMIT [Suspect]
     Active Substance: MACITENTAN
     Indication: PRODUCT USED FOR UNKNOWN INDICATION
     Dosage: UNK, UNKNOWN
  3. TYVASO [Suspect]
     Active Substance: TREPROSTINIL
     Indication: PULMONARY HYPERTENSION
     Dosage: 3 DF, QID
     Route: 055
     Dates: start: 20140220
  4. TADALAFIL [Suspect]
     Active Substance: TADALAFIL
     Indication: PRODUCT USED FOR UNKNOWN INDICATION
     Dosage: UNK, QID
     Route: 065
  5. COUMADIN [Concomitant]
     Active Substance: WARFARIN SODIUM
     Dosage: UNK, UNKNOWN
     Route: 065
  6. TYVASO [Suspect]
     Active Substance: TREPROSTINIL
     Dosage: 10 DF, QID
     Route: 055
     Dates: start: 20140221

REACTIONS (11)
  - Pain in jaw [Unknown]
  - Feeling jittery [Unknown]
  - Migraine [Unknown]
  - Hypersensitivity [Unknown]
  - Insomnia [Unknown]
  - Restlessness [Unknown]
  - Sinus headache [Unknown]
  - Tongue disorder [Unknown]
  - Upper respiratory tract infection [Recovering/Resolving]
  - Lethargy [Unknown]
  - Sinus congestion [Unknown]
